FAERS Safety Report 8058355-5 (Version None)
Quarter: 2012Q1

REPORT INFORMATION
  Report Type: 
  Country: None (occurrence: None)
  Receive Date: 20120120
  Receipt Date: 20120109
  Transmission Date: 20120608
  Serious: Yes (Other)
  Sender: FDA-Public Use
  Company Number: TW-ELI_LILLY_AND_COMPANY-TW201201003620

PATIENT
  Age: 27 Year
  Sex: Female

DRUGS (3)
  1. OLANZAPINE [Suspect]
     Dosage: 20 MG, QD
  2. PREDNISOLONE [Concomitant]
  3. LITHIUM CARBONATE [Concomitant]
     Dosage: 900 MG, QD

REACTIONS (9)
  - CHILLS [None]
  - TACHYCARDIA [None]
  - NEUTROPENIA [None]
  - LEUKOPENIA [None]
  - PYREXIA [None]
  - ASPARTATE AMINOTRANSFERASE INCREASED [None]
  - ALANINE AMINOTRANSFERASE INCREASED [None]
  - TOXIC SKIN ERUPTION [None]
  - THROMBOCYTOPENIA [None]
